FAERS Safety Report 7524627-3 (Version None)
Quarter: 2011Q2

REPORT INFORMATION
  Report Type: 
  Country: None (occurrence: None)
  Receive Date: 20110525
  Receipt Date: 20110510
  Transmission Date: 20111010
  Serious: Yes (Life-Threatening, Hospitalization, Other)
  Sender: FDA-Public Use
  Company Number: 2011MA005773

PATIENT
  Age: 61 Year
  Sex: Female

DRUGS (2)
  1. FEVERALL [Suspect]
     Indication: PRODUCT USED FOR UNKNOWN INDICATION
     Dosage: 23.94 G, 1X,PO
     Route: 048
  2. ETHANOL [Suspect]

REACTIONS (3)
  - SOMNOLENCE [None]
  - BLOOD GLUCOSE INCREASED [None]
  - OVERDOSE [None]
